FAERS Safety Report 10071526 (Version 2)
Quarter: 2014Q2

REPORT INFORMATION
  Report Type: Report from Study
  Country: JP (occurrence: JP)
  Receive Date: 20140410
  Receipt Date: 20140612
  Transmission Date: 20141212
  Serious: Yes (Life-Threatening)
  Sender: FDA-Public Use
  Company Number: JP-ABBVIE-14P-087-1224350-00

PATIENT
  Age: 72 Year
  Sex: Female
  Weight: 33.4 kg

DRUGS (8)
  1. KLARICID TABLETS 200MG [Suspect]
     Indication: ATYPICAL MYCOBACTERIAL INFECTION
     Route: 048
     Dates: start: 20091215, end: 20120620
  2. ETHAMBUTOL HYDROCHLORIDE [Concomitant]
     Indication: ATYPICAL MYCOBACTERIAL INFECTION
     Dates: start: 20091215, end: 20120620
  3. ETHAMBUTOL HYDROCHLORIDE [Concomitant]
     Dates: start: 19990801, end: 20030501
  4. RIFAMPICIN [Concomitant]
     Indication: ATYPICAL MYCOBACTERIAL INFECTION
     Dates: start: 20091215, end: 20120620
  5. RIFAMPICIN [Concomitant]
     Dates: start: 19990801, end: 20030501
  6. DEXTROMETHORPHAN HYDROBROMIDE [Concomitant]
     Indication: ATYPICAL MYCOBACTERIAL INFECTION
     Route: 048
  7. CARBOCISTEINE [Concomitant]
     Indication: ATYPICAL MYCOBACTERIAL INFECTION
     Route: 048
  8. PYRIDOXAL PHOSPHATE [Concomitant]
     Indication: PROPHYLAXIS
     Route: 048
     Dates: start: 20091215

REACTIONS (1)
  - Colon cancer [Recovered/Resolved]
